FAERS Safety Report 22197799 (Version 1)
Quarter: 2023Q2

REPORT INFORMATION
  Report Type: Spontaneous
  Country: GB (occurrence: GB)
  Receive Date: 20230411
  Receipt Date: 20230411
  Transmission Date: 20230721
  Serious: Yes (Hospitalization)
  Sender: FDA-Public Use
  Company Number: GB-MYLANLABS-2023M1033093

PATIENT
  Age: 77 Year
  Sex: Male

DRUGS (1)
  1. SILDENAFIL [Suspect]
     Active Substance: SILDENAFIL
     Indication: Product used for unknown indication
     Dosage: 150 MILLIGRAM DAILY; 50 MILLIGRAM, TID
     Route: 065

REACTIONS (1)
  - Tachycardia [Not Recovered/Not Resolved]
